FAERS Safety Report 8006142-6 (Version None)
Quarter: 2011Q4

REPORT INFORMATION
  Report Type: 
  Country: None (occurrence: None)
  Receive Date: 20111226
  Receipt Date: 20111213
  Transmission Date: 20120403
  Serious: Yes (Hospitalization)
  Sender: FDA-Public Use
  Company Number: US-ELI_LILLY_AND_COMPANY-US201109001264

PATIENT
  Age: 62 Year
  Sex: Male

DRUGS (1)
  1. ZYPREXA [Suspect]
     Indication: CONVULSION
     Dosage: 20 MG, QD
     Dates: start: 20080101

REACTIONS (2)
  - NERVE INJURY [None]
  - OFF LABEL USE [None]
